FAERS Safety Report 16320642 (Version 3)
Quarter: 2019Q3

REPORT INFORMATION
  Report Type: Spontaneous
  Country: US (occurrence: US)
  Receive Date: 20190516
  Receipt Date: 20190705
  Transmission Date: 20191004
  Serious: Yes (Hospitalization)
  Sender: FDA-Public Use
  Company Number: US-HORIZON-PRO-0097-2019

PATIENT
  Age: 23 Year
  Sex: Male

DRUGS (6)
  1. FAMOTIDINE. [Concomitant]
     Active Substance: FAMOTIDINE
  2. PROCYSBI [Suspect]
     Active Substance: CYSTEAMINE BITARTRATE
     Indication: CYSTINOSIS
     Dosage: 8 (EIGHT) 75 MG CAPSULES BY MOUTH EVERY 12 HOURS
     Route: 048
     Dates: start: 201311
  3. MYCOPHENOLATE [Concomitant]
     Active Substance: MYCOPHENOLIC ACID
  4. TACROLIMUS. [Concomitant]
     Active Substance: TACROLIMUS
  5. ATENOLOL. [Concomitant]
     Active Substance: ATENOLOL
  6. CYSTEAMINE [Concomitant]
     Active Substance: CYSTEAMINE

REACTIONS (3)
  - Off label use [Unknown]
  - Surgery [Unknown]
  - Pneumothorax [Unknown]

NARRATIVE: CASE EVENT DATE: 201811
